FAERS Safety Report 9454631 (Version 3)
Quarter: 2013Q4

REPORT INFORMATION
  Report Type: Spontaneous
  Country: US (occurrence: US)
  Receive Date: 20130812
  Receipt Date: 20131230
  Transmission Date: 20140711
  Serious: Yes (Hospitalization, Other)
  Sender: FDA-Public Use
  Company Number: US-PERRIGO-13US008069

PATIENT
  Age: 65 Year
  Sex: Female
  Weight: 95.24 kg

DRUGS (6)
  1. NICOTINE 2 MG MINT 344 [Suspect]
     Indication: SMOKING CESSATION THERAPY
     Dosage: 2 MG, BID
     Route: 002
     Dates: start: 201208, end: 20130731
  2. NICOTINE 2 MG MINT 344 [Suspect]
     Dosage: 2 MG, BID
     Route: 002
     Dates: start: 20130801, end: 20130801
  3. NICOTINE 2 MG MINT 344 [Suspect]
     Dosage: 2 MG, 4 TO 5 TIMES DAILY
     Route: 002
  4. FISH OIL [Concomitant]
     Indication: VITAMIN SUPPLEMENTATION
     Dosage: UNK
     Route: 048
     Dates: start: 2012
  5. GLUCOSAMINE [Concomitant]
     Indication: VITAMIN SUPPLEMENTATION
     Dosage: UNK
     Route: 048
     Dates: start: 2008
  6. PRAVASTATIN [Concomitant]
     Indication: BLOOD CHOLESTEROL INCREASED
     Dosage: 40 MG, QD
     Route: 048
     Dates: start: 20130802, end: 20130803

REACTIONS (7)
  - Muscle twitching [Recovered/Resolved]
  - Overdose [Recovered/Resolved]
  - Dysarthria [Recovered/Resolved]
  - Toxic encephalopathy [Recovered/Resolved]
  - Hypertensive emergency [Recovered/Resolved]
  - Blood pressure increased [Recovered/Resolved]
  - Incorrect drug administration duration [Recovered/Resolved]
